FAERS Safety Report 12423605 (Version 1)
Quarter: 2016Q2

REPORT INFORMATION
  Report Type: Spontaneous
  Country: TH (occurrence: TH)
  Receive Date: 20160601
  Receipt Date: 20160601
  Transmission Date: 20160815
  Serious: Yes (Other)
  Sender: FDA-Public Use
  Company Number: TH-VIIV HEALTHCARE LIMITED-TH2016GSK076222

PATIENT
  Age: 65 Year
  Sex: Male

DRUGS (2)
  1. KIVEXA [Suspect]
     Active Substance: ABACAVIR SULFATE\LAMIVUDINE
     Indication: PRODUCT USED FOR UNKNOWN INDICATION
     Dosage: UNK
     Dates: start: 20160504, end: 20160523
  2. EFAVIRENZ [Suspect]
     Active Substance: EFAVIRENZ
     Indication: PRODUCT USED FOR UNKNOWN INDICATION
     Dosage: UNK
     Dates: start: 20160504, end: 20160523

REACTIONS (4)
  - Myalgia [Unknown]
  - Drug reaction with eosinophilia and systemic symptoms [Unknown]
  - Arthralgia [Unknown]
  - Pruritus [Unknown]

NARRATIVE: CASE EVENT DATE: 20160520
